FAERS Safety Report 13095149 (Version 1)
Quarter: 2017Q1

REPORT INFORMATION
  Report Type: Other
  Country: CA (occurrence: CA)
  Receive Date: 20170107
  Receipt Date: 20170107
  Transmission Date: 20170428
  Serious: Yes (Other)
  Sender: FDA-Public Use
  Company Number: CA-GRANULES INDIA LIMITED-1061705

PATIENT
  Sex: Female

DRUGS (9)
  1. PANTOPRAZOLE SODIUM. [Suspect]
     Active Substance: PANTOPRAZOLE SODIUM
  2. METFORMIN HYDROCHLORIDE. [Suspect]
     Active Substance: METFORMIN HYDROCHLORIDE
     Indication: PRODUCT USED FOR UNKNOWN INDICATION
  3. RAMIPRIL. [Suspect]
     Active Substance: RAMIPRIL
  4. GLICLAZIDE [Suspect]
     Active Substance: GLICLAZIDE
  5. DIAMICRON [Suspect]
     Active Substance: GLICLAZIDE
  6. DEXAMETHASONE. [Suspect]
     Active Substance: DEXAMETHASONE
  7. SITAGLIPTIN [Suspect]
     Active Substance: SITAGLIPTIN
  8. TEMOZOLOMIDE. [Suspect]
     Active Substance: TEMOZOLOMIDE
  9. ROSUVASTATIN. [Suspect]
     Active Substance: ROSUVASTATIN

REACTIONS (1)
  - Vanishing bile duct syndrome [Unknown]
